FAERS Safety Report 25078907 (Version 1)
Quarter: 2025Q1

REPORT INFORMATION
  Report Type: Report from Study
  Country: ES (occurrence: ES)
  Receive Date: 20250314
  Receipt Date: 20250314
  Transmission Date: 20250408
  Serious: Yes (Other)
  Sender: TRAVERE THERAPEUTICS
  Company Number: ES-BEH-2025198546

PATIENT
  Sex: Male

DRUGS (1)
  1. FILSPARI [Suspect]
     Active Substance: SPARSENTAN
     Indication: IgA nephropathy
     Route: 065

REACTIONS (2)
  - Renal failure [Unknown]
  - Disease progression [Unknown]
